FAERS Safety Report 7680806-6 (Version None)
Quarter: 2011Q3

REPORT INFORMATION
  Report Type: 
  Country: None (occurrence: None)
  Receive Date: 20110812
  Receipt Date: 20110809
  Transmission Date: 20111222
  Serious: Yes (Disabling)
  Sender: FDA-Public Use
  Company Number: GB-MERCK-1108GBR00057

PATIENT
  Age: 60 Year
  Sex: Female
  Weight: 62 kg

DRUGS (6)
  1. CALCIUM CARBONATE [Concomitant]
     Route: 065
     Dates: start: 20110310
  2. PHENYTOIN SODIUM [Concomitant]
     Route: 065
     Dates: start: 20110203
  3. FOSAMAX [Suspect]
     Route: 048
     Dates: start: 20110201
  4. LEVOTHYROXINE SODIUM [Concomitant]
     Route: 065
     Dates: start: 20101217
  5. VALPROATE SODIUM [Concomitant]
     Route: 065
  6. BECLOMETHASONE DIPROPIONATE [Concomitant]
     Route: 065
     Dates: start: 20110627, end: 20110725

REACTIONS (2)
  - VISION BLURRED [None]
  - OCULAR HYPERAEMIA [None]
